FAERS Safety Report 11453098 (Version 1)
Quarter: 2015Q3

REPORT INFORMATION
  Report Type: Spontaneous
  Country: US (occurrence: US)
  Receive Date: 20150831
  Receipt Date: 20150831
  Transmission Date: 20151125
  Serious: No
  Sender: FDA-Public Use
  Company Number: US-ELI_LILLY_AND_COMPANY-US200909004216

PATIENT
  Age: 43 Year
  Sex: Male

DRUGS (1)
  1. CYMBALTA [Suspect]
     Active Substance: DULOXETINE HYDROCHLORIDE
     Dosage: 60 MG, UNK
     Route: 048
     Dates: start: 20090818, end: 20090906

REACTIONS (6)
  - Insomnia [Recovered/Resolved]
  - Constipation [Recovered/Resolved]
  - Orgasm abnormal [Recovered/Resolved]
  - Urinary hesitation [Recovered/Resolved]
  - Retrograde ejaculation [Recovered/Resolved]
  - Dysuria [Recovered/Resolved]

NARRATIVE: CASE EVENT DATE: 2009
